FAERS Safety Report 9304909 (Version 1)
Quarter: 2013Q2

REPORT INFORMATION
  Report Type: Spontaneous
  Country: FR (occurrence: FR)
  Receive Date: 20130523
  Receipt Date: 20130523
  Transmission Date: 20140414
  Serious: Yes (Hospitalization)
  Sender: FDA-Public Use
  Company Number: FR-TEVA-407067USA

PATIENT
  Age: 66 Year
  Sex: Male

DRUGS (17)
  1. TREANDA [Suspect]
     Dosage: UID/QD
     Route: 042
  2. CAELYX [Suspect]
     Indication: PLASMA CELL MYELOMA
     Dates: start: 20110502
  3. VELCADE [Suspect]
     Indication: PLASMA CELL MYELOMA
     Route: 042
     Dates: start: 20100906
  4. VELCADE [Suspect]
     Route: 042
     Dates: start: 20101125
  5. VELCADE [Suspect]
     Route: 042
     Dates: start: 20110429
  6. VELCADE [Suspect]
     Route: 042
     Dates: start: 20110627
  7. VELCADE [Suspect]
     Route: 042
     Dates: start: 20121119
  8. VELCADE [Suspect]
     Route: 042
     Dates: start: 20130307
  9. VELCADE [Suspect]
     Dosage: UNKNOWN
     Route: 042
  10. DEXAMETHASONE [Suspect]
     Indication: PLASMA CELL MYELOMA
     Route: 042
     Dates: start: 20100906
  11. DEXAMETHASONE [Suspect]
     Route: 042
     Dates: start: 20101125
  12. DEXAMETHASONE [Suspect]
     Route: 042
     Dates: start: 20110627
  13. DEXAMETHASONE [Suspect]
     Route: 058
     Dates: start: 20121119
  14. DEXAMETHASONE [Suspect]
     Route: 057
     Dates: start: 20130307
  15. DEXAMETHASONE [Suspect]
     Route: 042
     Dates: start: 20121119
  16. NEODEX [Suspect]
     Dates: start: 20100906, end: 20130318
  17. MELPHALAN [Suspect]
     Indication: PRODUCT USED FOR UNKNOWN INDICATION
     Dates: start: 20110820

REACTIONS (3)
  - Leukoencephalopathy [Not Recovered/Not Resolved]
  - Confusional state [Not Recovered/Not Resolved]
  - Gait disturbance [Not Recovered/Not Resolved]
